FAERS Safety Report 18268634 (Version 1)
Quarter: 2020Q3

REPORT INFORMATION
  Report Type: Spontaneous
  Country: US (occurrence: US)
  Receive Date: 20200915
  Receipt Date: 20200915
  Transmission Date: 20201103
  Serious: No
  Sender: FDA-Public Use
  Company Number: US-PERRIGO-20US004133

PATIENT
  Age: 76 Year
  Sex: Female
  Weight: 58.05 kg

DRUGS (2)
  1. MINOXIDIL. [Suspect]
     Active Substance: MINOXIDIL
     Dosage: 1 ML, BID
     Route: 061
     Dates: start: 20200427, end: 20200503
  2. MINOXIDIL. [Suspect]
     Active Substance: MINOXIDIL
     Indication: ALOPECIA
     Dosage: 1 ML, BID
     Route: 061
     Dates: start: 20200306, end: 20200426

REACTIONS (6)
  - Ocular discomfort [Recovered/Resolved]
  - Inappropriate schedule of product administration [Unknown]
  - Eye irritation [Unknown]
  - Ocular hyperaemia [Unknown]
  - Exposure via eye contact [Recovered/Resolved]
  - Eyelid irritation [Unknown]

NARRATIVE: CASE EVENT DATE: 20200311
